FAERS Safety Report 14418053 (Version 1)
Quarter: 2018Q1

REPORT INFORMATION
  Report Type: Spontaneous
  Country: US (occurrence: US)
  Receive Date: 20180119
  Receipt Date: 20180119
  Transmission Date: 20180509
  Serious: Yes (Death)
  Sender: FDA-Public Use
  Company Number: None

PATIENT
  Age: 63 Year
  Sex: Male
  Weight: 72 kg

DRUGS (9)
  1. ACEBUTOLOL [Concomitant]
     Active Substance: ACEBUTOLOL
  2. GABAPENTIN. [Suspect]
     Active Substance: GABAPENTIN
     Indication: NERVE COMPRESSION
     Dosage: ?          QUANTITY:180 CAPSULE(S);?
     Route: 048
     Dates: start: 20140611, end: 20170406
  3. SLEEP APNEA MACHINE [Concomitant]
  4. MULTI VITAMIN [Concomitant]
     Active Substance: VITAMINS
  5. GABAPENTIN. [Suspect]
     Active Substance: GABAPENTIN
     Indication: BACK PAIN
     Dosage: ?          QUANTITY:180 CAPSULE(S);?
     Route: 048
     Dates: start: 20140611, end: 20170406
  6. TRAZODONE [Concomitant]
     Active Substance: TRAZODONE HYDROCHLORIDE
  7. QUINAPRIL. [Concomitant]
     Active Substance: QUINAPRIL
  8. DULOXETINE. [Concomitant]
     Active Substance: DULOXETINE
  9. HYDROCHLOROTHIAZIDE. [Concomitant]
     Active Substance: HYDROCHLOROTHIAZIDE

REACTIONS (3)
  - Anger [None]
  - Agitation [None]
  - Completed suicide [None]

NARRATIVE: CASE EVENT DATE: 20170409
